FAERS Safety Report 17657727 (Version 2)
Quarter: 2021Q4

REPORT INFORMATION
  Report Type: Report from Study
  Country: US (occurrence: US)
  Receive Date: 20200411
  Receipt Date: 20211124
  Transmission Date: 20220303
  Serious: No
  Sender: FDA-Public Use
  Company Number: US-NOVARTISTESTPH-NVSC2020US097487

PATIENT
  Age: 3 Year
  Sex: Female
  Weight: 15.42 kg

DRUGS (3)
  1. ALPELISIB [Suspect]
     Active Substance: ALPELISIB
     Indication: PIK3CA related overgrowth spectrum
     Dosage: 50 MG, QD
     Route: 048
     Dates: start: 20200225
  2. ALPELISIB [Suspect]
     Active Substance: ALPELISIB
     Dosage: 25 MG
     Route: 048
  3. ALPELISIB [Suspect]
     Active Substance: ALPELISIB
     Dosage: 50 MG, QD
     Route: 048

REACTIONS (3)
  - Perioral dermatitis [Recovering/Resolving]
  - Drooling [Recovering/Resolving]
  - Product administered to patient of inappropriate age [Unknown]

NARRATIVE: CASE EVENT DATE: 20200226
